FAERS Safety Report 5976668-5 (Version None)
Quarter: 2008Q4

REPORT INFORMATION
  Report Type: 
  Country: None (occurrence: None)
  Receive Date: 20081201
  Receipt Date: 20081201
  Transmission Date: 20090506
  Serious: Yes (Other)
  Sender: FDA-Public Use
  Company Number: None

PATIENT
  Age: 61 Year
  Sex: Male
  Weight: 90.7194 kg

DRUGS (1)
  1. KEFLEX [Suspect]
     Indication: POST PROCEDURAL INFECTION
     Dosage: 1 CAP 4 TIMES DAY
     Dates: start: 20081105, end: 20081107

REACTIONS (5)
  - NAUSEA [None]
  - RASH ERYTHEMATOUS [None]
  - RASH MACULAR [None]
  - RASH PRURITIC [None]
  - URTICARIA [None]
